FAERS Safety Report 6379316-8 (Version None)
Quarter: 2009Q3

REPORT INFORMATION
  Report Type: 
  Country: None (occurrence: None)
  Receive Date: 20090923
  Receipt Date: 20090923
  Transmission Date: 20100115
  Serious: Yes (Hospitalization)
  Sender: FDA-Public Use
  Company Number: None

PATIENT
  Age: 59 Year
  Sex: Male

DRUGS (13)
  1. VANCOMYCIN [Suspect]
     Indication: INFECTION
     Dosage: 1250 MG IV Q 12 ?
     Dates: start: 20090320, end: 20090411
  2. LANSOPRAZOLE [Concomitant]
  3. CALCIUM [Concomitant]
  4. ASCORBIC ACID [Concomitant]
  5. VIT A [Concomitant]
  6. ZINC [Concomitant]
  7. BUPROPION HCL [Concomitant]
  8. CITALOPRAM HYDROBROMIDE [Concomitant]
  9. LISINOPRIL [Concomitant]
  10. ROSUVASTATIN CALCIUM [Concomitant]
  11. ATENOLOL [Concomitant]
  12. NIACIN [Concomitant]
  13. VALPROIC ACID [Concomitant]

REACTIONS (1)
  - BLOOD UREA INCREASED [None]
